FAERS Safety Report 8295685-6 (Version None)
Quarter: 2012Q2

REPORT INFORMATION
  Report Type: 
  Country: None (occurrence: None)
  Receive Date: 20120418
  Receipt Date: 20120409
  Transmission Date: 20120825
  Serious: Yes (Other)
  Sender: FDA-Public Use
  Company Number: JP-ASTRAZENECA-2010SE58463

PATIENT
  Age: 34 Year
  Sex: Female
  Weight: 30 kg

DRUGS (4)
  1. DEPAKENE [Concomitant]
     Indication: EPILEPSY
     Dosage: DOSE UNKNOWN
     Route: 048
  2. DIPRIVAN [Suspect]
     Indication: INDUCTION AND MAINTENANCE OF ANAESTHESIA
     Dosage: BOLUS ADMINISTRATION OF 40 MG AND CONTINUOUS ADMINISTRATION AT 5-7 MG/KG/H
     Route: 042
     Dates: start: 20101112, end: 20101112
  3. MIDAZOLAM [Concomitant]
     Dosage: 2 MG NUMBER OF SEPARATE DOSAGES UNKNOWN
     Route: 065
  4. DEPAS [Concomitant]
     Indication: CEREBRAL PALSY
     Dosage: DOSE UNKNOWN
     Route: 048

REACTIONS (4)
  - PYREXIA [None]
  - PAROTID GLAND ENLARGEMENT [None]
  - HYPERAMYLASAEMIA [None]
  - POST PROCEDURAL COMPLICATION [None]
